FAERS Safety Report 15094460 (Version 3)
Quarter: 2018Q4

REPORT INFORMATION
  Report Type: Spontaneous
  Country: US (occurrence: US)
  Receive Date: 20180630
  Receipt Date: 20181031
  Transmission Date: 20190204
  Serious: No
  Sender: FDA-Public Use
  Company Number: US-IPSEN BIOPHARMACEUTICALS, INC.-2018-09472

PATIENT
  Age: 37 Year
  Sex: Female

DRUGS (4)
  1. DYSPORT [Suspect]
     Active Substance: ABOBOTULINUMTOXINA
     Indication: SKIN WRINKLING
     Dosage: 50 IU
     Route: 030
     Dates: start: 20180328
  2. DYSPORT [Suspect]
     Active Substance: ABOBOTULINUMTOXINA
     Indication: OFF LABEL USE
  3. DYSPORT [Suspect]
     Active Substance: ABOBOTULINUMTOXINA
     Indication: SKIN WRINKLING
     Dosage: CROWS FEET, 3 INJECTIONS PTS PER SIDE 8 UNIT/SITE = 48 TOTAL
     Route: 030
     Dates: start: 20180328
  4. DYSPORT [Suspect]
     Active Substance: ABOBOTULINUMTOXINA
     Indication: SKIN WRINKLING
     Dosage: FOREHEAD, 5 UNITS/INJECTION OVER 8 UNIT/SITE= 40 UNITS
     Route: 065
     Dates: start: 20180328

REACTIONS (4)
  - Headache [Recovering/Resolving]
  - Ocular discomfort [Recovering/Resolving]
  - Overdose [Unknown]
  - Off label use [Unknown]

NARRATIVE: CASE EVENT DATE: 2018
